FAERS Safety Report 7694383-7 (Version None)
Quarter: 2011Q3

REPORT INFORMATION
  Report Type: 
  Country: None (occurrence: None)
  Receive Date: 20110819
  Receipt Date: 20110816
  Transmission Date: 20111222
  Serious: Yes (Hospitalization)
  Sender: FDA-Public Use
  Company Number: US-BRISTOL-MYERS SQUIBB COMPANY-15974157

PATIENT
  Age: 65 Year
  Sex: Female

DRUGS (4)
  1. LEVOXYL [Concomitant]
  2. NORVASC [Concomitant]
  3. XANAX [Concomitant]
  4. COUMADIN [Suspect]

REACTIONS (1)
  - DEEP VEIN THROMBOSIS [None]
